FAERS Safety Report 23519121 (Version 3)
Quarter: 2024Q1

REPORT INFORMATION
  Report Type: Report from Study
  Country: US (occurrence: US)
  Receive Date: 20240213
  Receipt Date: 20240325
  Transmission Date: 20240410
  Serious: Yes (Hospitalization)
  Sender: FDA-Public Use
  Company Number: US-BAUSCH-BL-2024-002106

PATIENT
  Age: 58 Year
  Sex: Male

DRUGS (2)
  1. XIFAXAN [Suspect]
     Active Substance: RIFAXIMIN
     Indication: Hepatic encephalopathy
     Route: 048
     Dates: start: 2023, end: 202401
  2. XIFAXAN [Suspect]
     Active Substance: RIFAXIMIN
     Dosage: RESTARTED THE MEDICATION
     Route: 048
     Dates: start: 202402

REACTIONS (9)
  - Pneumonia [Unknown]
  - General physical health deterioration [Recovering/Resolving]
  - Tremor [Unknown]
  - Senile dementia [Recovering/Resolving]
  - Confusional state [Recovering/Resolving]
  - Chills [Unknown]
  - Therapy interrupted [Unknown]
  - Insurance issue [Unknown]
  - Product availability issue [Unknown]

NARRATIVE: CASE EVENT DATE: 20240101
